FAERS Safety Report 25075018 (Version 1)
Quarter: 2025Q1

REPORT INFORMATION
  Report Type: Spontaneous
  Country: US (occurrence: US)
  Receive Date: 20250313
  Receipt Date: 20250313
  Transmission Date: 20250409
  Serious: No
  Sender: RARE DISEASE THERAPEUTICS, INC.
  Company Number: US-Rare Disease Therapeutics, Inc.-2172785

PATIENT
  Age: 59 Year
  Sex: Female

DRUGS (1)
  1. ANAVIP [Suspect]
     Active Substance: PIT VIPER (CROTALINAE) IMMUNE GLOBULIN ANTIVENIN (EQUINE)
     Indication: Snake bite
     Dates: start: 20230507, end: 20230507

REACTIONS (2)
  - Tongue pruritus [Recovered/Resolved]
  - Pruritus [Recovered/Resolved]

NARRATIVE: CASE EVENT DATE: 20230507
